FAERS Safety Report 21932941 (Version 2)
Quarter: 2023Q1

REPORT INFORMATION
  Report Type: Spontaneous
  Country: US (occurrence: US)
  Receive Date: 20230131
  Receipt Date: 20230313
  Transmission Date: 20230417
  Serious: No
  Sender: FDA-Public Use
  Company Number: US-009507513-2301USA008016

PATIENT
  Sex: Female

DRUGS (1)
  1. KEYTRUDA [Suspect]
     Active Substance: PEMBROLIZUMAB
     Indication: Neuroendocrine carcinoma of the skin
     Dosage: 200 MILLIGRAM, EVERY 21 DAYS (Q3W)
     Route: 042
     Dates: start: 20220804

REACTIONS (5)
  - Post procedural complication [Not Recovered/Not Resolved]
  - Skin injury [Not Recovered/Not Resolved]
  - Eye swelling [Not Recovered/Not Resolved]
  - Vision blurred [Not Recovered/Not Resolved]
  - Product use issue [Unknown]

NARRATIVE: CASE EVENT DATE: 20220101
